FAERS Safety Report 15218229 (Version 1)
Quarter: 2018Q3

REPORT INFORMATION
  Report Type: Spontaneous
  Country: US (occurrence: US)
  Receive Date: 20180730
  Receipt Date: 20180730
  Transmission Date: 20181010
  Serious: Yes (Hospitalization, Other)
  Sender: FDA-Public Use
  Company Number: US-ALEMBIC PHARMACUETICALS LIMITED-2018SCAL000547

PATIENT

DRUGS (1)
  1. LITHIUM CARBONATE. [Suspect]
     Active Substance: LITHIUM CARBONATE
     Indication: BIPOLAR DISORDER
     Dosage: UNK

REACTIONS (6)
  - Mental status changes [Recovering/Resolving]
  - Lethargy [Recovering/Resolving]
  - Antipsychotic drug level above therapeutic [Recovering/Resolving]
  - Thyrotoxic crisis [Recovering/Resolving]
  - Encephalopathy [Recovering/Resolving]
  - Hyperthyroidism [Recovering/Resolving]
